FAERS Safety Report 5059714-5 (Version None)
Quarter: 2006Q3

REPORT INFORMATION
  Report Type: 
  Country: None (occurrence: None)
  Receive Date: 20060718
  Receipt Date: 20060627
  Transmission Date: 20061208
  Serious: Yes (Hospitalization)
  Sender: FDA-Public Use
  Company Number: GB200606002823

PATIENT
  Age: 74 Year
  Sex: Female

DRUGS (8)
  1. CYMBALTA [Suspect]
     Indication: BIPOLAR I DISORDER
     Dosage: 30 MG 2/D ORAL
     Route: 048
     Dates: start: 20060509, end: 20060518
  2. DEPAKOTE [Concomitant]
  3. BENDROFLUMETHIAZIDE [Concomitant]
  4. LISINOPRIL [Concomitant]
  5. LAMOTRIGINE [Concomitant]
  6. GLICLAZIDE [Concomitant]
  7. METFORMIN [Concomitant]
  8. DOXAZOSIN [Concomitant]

REACTIONS (10)
  - AMNESIA [None]
  - BLOOD POTASSIUM DECREASED [None]
  - BLOOD SODIUM DECREASED [None]
  - CONTUSION [None]
  - DIARRHOEA [None]
  - FALL [None]
  - GENERAL PHYSICAL HEALTH DETERIORATION [None]
  - HEAD INJURY [None]
  - NAUSEA [None]
  - WALKING DISABILITY [None]
